FAERS Safety Report 4956741-0 (Version None)
Quarter: 2006Q1

REPORT INFORMATION
  Report Type: 
  Country: None (occurrence: None)
  Receive Date: 20060329
  Receipt Date: 20060322
  Transmission Date: 20060701
  Serious: Yes (Hospitalization)
  Sender: FDA-Public Use
  Company Number: US-ROCHE-441727

PATIENT
  Age: 63 Year
  Sex: Female

DRUGS (7)
  1. XENICAL [Suspect]
     Route: 048
     Dates: start: 20060312, end: 20060312
  2. WELLBUTRIN [Concomitant]
     Indication: DEPRESSION
     Route: 048
  3. PROZAC [Concomitant]
     Indication: DEPRESSION
     Route: 048
  4. HYDROCHLOROTHIAZIDE [Concomitant]
     Route: 048
  5. LISINOPRIL [Concomitant]
     Route: 048
  6. RITALIN [Concomitant]
     Indication: LEARNING DISABILITY
     Route: 048
  7. VITAMINS NOS [Concomitant]
     Route: 048

REACTIONS (6)
  - AMNESIA [None]
  - FALL [None]
  - LYME DISEASE [None]
  - NAUSEA [None]
  - SKIN LACERATION [None]
  - VOMITING [None]
